FAERS Safety Report 14024271 (Version 1)
Quarter: 2017Q3

REPORT INFORMATION
  Report Type: Spontaneous
  Country: FR (occurrence: FR)
  Receive Date: 20170929
  Receipt Date: 20170929
  Transmission Date: 20171128
  Serious: Yes (Other)
  Sender: FDA-Public Use
  Company Number: FR-MERCK KGAA-2028227

PATIENT
  Age: 44 Year
  Sex: Female

DRUGS (1)
  1. NOVOTHYROX [Suspect]
     Active Substance: LEVOTHYROXINE SODIUM
     Indication: PRODUCT USED FOR UNKNOWN INDICATION
     Dates: start: 201704

REACTIONS (9)
  - Pollakiuria [Unknown]
  - Hyperthyroidism [Unknown]
  - Vertigo [Unknown]
  - Alopecia [Unknown]
  - Palpitations [Unknown]
  - Tremor [Unknown]
  - Vomiting [Unknown]
  - Chromaturia [Unknown]
  - Nausea [Unknown]

NARRATIVE: CASE EVENT DATE: 2017
